FAERS Safety Report 8581832-5 (Version None)
Quarter: 2012Q3

REPORT INFORMATION
  Report Type: 
  Country: None (occurrence: None)
  Receive Date: 20120801
  Receipt Date: 20120801
  Transmission Date: 20120928
  Serious: No
  Sender: FDA-Public Use
  Company Number: None

PATIENT
  Age: 13 Year
  Sex: Female
  Weight: 53.7512 kg

DRUGS (2)
  1. SEROQUEL [Suspect]
     Dosage: SEROQUEL 25MG AT BEDTIME ORAL
     Route: 048
  2. SEROQUEL [Suspect]
     Indication: SLEEP DISORDER
     Dosage: SEROQUEL 100MG AT BEDTIME ORAL
     Route: 048
     Dates: start: 20120501

REACTIONS (3)
  - DRUG INEFFECTIVE [None]
  - INSOMNIA [None]
  - THERAPEUTIC RESPONSE UNEXPECTED WITH DRUG SUBSTITUTION [None]
